FAERS Safety Report 25578662 (Version 1)
Quarter: 2025Q3

REPORT INFORMATION
  Report Type: Spontaneous
  Country: CN (occurrence: CN)
  Receive Date: 20250718
  Receipt Date: 20250718
  Transmission Date: 20251021
  Serious: Yes (Other)
  Sender: ELI LILLY AND COMPANY
  Company Number: CN-Merck Healthcare KGaA-2025035060

PATIENT
  Age: 75 Year
  Sex: Male
  Weight: 60 kg

DRUGS (3)
  1. ERBITUX [Suspect]
     Active Substance: CETUXIMAB
     Indication: Laryngeal cancer
     Route: 042
     Dates: start: 20250527, end: 20250527
  2. PACLITAXEL [Suspect]
     Active Substance: PACLITAXEL
     Indication: Laryngeal cancer
     Dosage: 210 MG, DAILY
     Route: 041
     Dates: start: 20250528, end: 20250528
  3. NEDAPLATIN [Suspect]
     Active Substance: NEDAPLATIN
     Indication: Laryngeal cancer
     Dosage: 100 MG, DAILY
     Route: 041
     Dates: start: 20250529, end: 20250529

REACTIONS (1)
  - Myelosuppression [Recovering/Resolving]

NARRATIVE: CASE EVENT DATE: 20250618
